FAERS Safety Report 17307158 (Version 2)
Quarter: 2020Q1

REPORT INFORMATION
  Report Type: Spontaneous
  Country: DE (occurrence: DE)
  Receive Date: 20200123
  Receipt Date: 20200130
  Transmission Date: 20200409
  Serious: Yes (Other)
  Sender: FDA-Public Use
  Company Number: DE-US-PROVELL PHARMACEUTICALS LLC-E2B_90074163

PATIENT
  Age: 52 Year
  Sex: Female
  Weight: 46 kg

DRUGS (3)
  1. IBUPROFEN. [Concomitant]
     Active Substance: IBUPROFEN
     Indication: PRODUCT USED FOR UNKNOWN INDICATION
  2. EUTHYROX [Suspect]
     Active Substance: LEVOTHYROXINE SODIUM
     Indication: HYPOTHYROIDISM
     Dates: start: 2019, end: 20191001
  3. EUTHYROX [Suspect]
     Active Substance: LEVOTHYROXINE SODIUM
     Dates: start: 20191001, end: 20200109

REACTIONS (31)
  - Reaction to excipient [Unknown]
  - Tremor [Unknown]
  - Nausea [Unknown]
  - Blindness unilateral [Unknown]
  - General physical health deterioration [Unknown]
  - Dysphagia [Unknown]
  - Back pain [Recovering/Resolving]
  - Restlessness [Unknown]
  - Aphasia [Unknown]
  - Abdominal pain upper [Unknown]
  - Dysphonia [Unknown]
  - Eye pain [Recovering/Resolving]
  - Memory impairment [Unknown]
  - Headache [Unknown]
  - Diarrhoea [Recovering/Resolving]
  - Decreased appetite [Unknown]
  - Dyspepsia [Unknown]
  - Dry mouth [Unknown]
  - Asthenia [Unknown]
  - Mucosal disorder [Unknown]
  - Muscle disorder [Unknown]
  - Intraocular pressure increased [Unknown]
  - Gastrooesophageal reflux disease [Unknown]
  - Tonsillar disorder [Recovering/Resolving]
  - Neck pain [Recovering/Resolving]
  - Gastrointestinal disorder [Recovering/Resolving]
  - Insomnia [Unknown]
  - Deafness unilateral [Unknown]
  - Gastrointestinal pain [Unknown]
  - Oesophageal pain [Recovering/Resolving]
  - Arthralgia [Recovering/Resolving]

NARRATIVE: CASE EVENT DATE: 2019
